FAERS Safety Report 4789040-0 (Version None)
Quarter: 2005Q4

REPORT INFORMATION
  Report Type: 
  Country: None (occurrence: None)
  Receive Date: 20051003
  Receipt Date: 20050708
  Transmission Date: 20060501
  Serious: No
  Sender: FDA-Public Use
  Company Number: SU-2005-003759

PATIENT
  Age: 64 Year
  Sex: Female
  Weight: 62.1428 kg

DRUGS (4)
  1. BENICAR HCT [Suspect]
     Indication: HYPERTENSION
     Dosage: 40.25 MG QD PO
     Route: 048
     Dates: start: 20050101
  2. VITAMINS [Concomitant]
  3. CALCIUM GLUCONATE [Concomitant]
  4. GLUCOSAMINE [Concomitant]

REACTIONS (4)
  - HYPERTENSION [None]
  - PRURITUS [None]
  - THROAT TIGHTNESS [None]
  - URTICARIA [None]
